FAERS Safety Report 8305806 (Version 5)
Quarter: 2012Q4

REPORT INFORMATION
  Report Type: 
  Country: FR (occurrence: FR)
  Receive Date: 20111221
  Receipt Date: 20120902
  Transmission Date: 20130627
  Serious: Yes (Hospitalization)
  Sender: FDA-Public Use
  Company Number: FR-AMGEN-FRASP2011068194

PATIENT
  Age: 86 Year
  Sex: Female

DRUGS (11)
  1. ENBREL [Suspect]
     Dosage: UNK
     Route: 058
     Dates: start: 200701, end: 20101213
  2. SALAZOPYRINE [Suspect]
     Indication: RHEUMATOID ARTHRITIS
     Dosage: 2 DF, 2x/day
     Route: 048
     Dates: start: 200707, end: 20101203
  3. PREDNISONE [Concomitant]
     Dosage: 7 mg, 1x/day
  4. TOPALGIC                           /00599202/ [Concomitant]
     Dosage: 200 mg, 2x/day
  5. FOSAMAX [Concomitant]
     Dosage: 70 mg, weekly
  6. CACIT D3 [Concomitant]
     Dosage: 1 DF, 1x/day
  7. RIVOTRIL [Concomitant]
     Dosage: 5 Gtt, 1x/day
  8. MICARDIS [Concomitant]
     Dosage: UNK
  9. OXYBUTIN [Concomitant]
     Dosage: 2.5 mg, 3x/day
  10. TARDYFERON [Concomitant]
     Dosage: 1 DF, 1x/day
  11. EFFERALGAN                         /00020001/ [Concomitant]
     Dosage: 1 g, 3x/day

REACTIONS (5)
  - Dermatitis exfoliative [Recovered/Resolved]
  - Rheumatoid arthritis [Recovered/Resolved]
  - Erythema multiforme [Recovered/Resolved]
  - Toxic skin eruption [Recovered/Resolved]
  - Rash [Recovered/Resolved]
